FAERS Safety Report 8447057-9 (Version None)
Quarter: 2012Q2

REPORT INFORMATION
  Report Type: 
  Country: None (occurrence: None)
  Receive Date: 20120619
  Receipt Date: 20120613
  Transmission Date: 20120825
  Serious: Yes (Hospitalization)
  Sender: FDA-Public Use
  Company Number: PHHY2012US050781

PATIENT
  Age: 32 Year
  Sex: Female

DRUGS (6)
  1. FLUTICASONE PROPIONATE W/SALMETEROL [Concomitant]
     Indication: ASTHMA
  2. MAGNESIUM SULFATE [Concomitant]
     Indication: ASTHMA
     Dosage: 2 G, UNK
     Route: 042
  3. METHYLPREDNISOLONE [Concomitant]
     Indication: ASTHMA
     Dosage: 125 MG, UNK
  4. TERBUTALINE [Suspect]
     Indication: ASTHMA
     Dosage: 0.25 MG, UNK
     Route: 058
  5. ALBUTEROL [Suspect]
     Indication: ASTHMA
  6. MONTELUKAST [Concomitant]
     Indication: ASTHMA
     Dosage: 10 MG, DAILY

REACTIONS (1)
  - LACTIC ACIDOSIS [None]
